FAERS Safety Report 17030513 (Version 2)
Quarter: 2020Q1

REPORT INFORMATION
  Report Type: Spontaneous
  Country: AR (occurrence: AR)
  Receive Date: 20191114
  Receipt Date: 20200116
  Transmission Date: 20200409
  Serious: Yes (Other)
  Sender: FDA-Public Use
  Company Number: AR-PFIZER INC-2019486378

PATIENT
  Age: 74 Year
  Sex: Female

DRUGS (1)
  1. IBRANCE [Suspect]
     Active Substance: PALBOCICLIB
     Indication: BREAST CANCER METASTATIC
     Dosage: 125 MG, CYCLIC (DAILY 3X1 SCHEME)
     Dates: start: 20190306

REACTIONS (5)
  - Platelet disorder [Recovered/Resolved]
  - Renal impairment [Recovered/Resolved]
  - Platelet count increased [Unknown]
  - Dehydration [Recovered/Resolved]
  - Red blood cell count abnormal [Recovered/Resolved]

NARRATIVE: CASE EVENT DATE: 201910
